FAERS Safety Report 22359915 (Version 1)
Quarter: 2023Q2

REPORT INFORMATION
  Report Type: Spontaneous
  Country: US (occurrence: US)
  Receive Date: 20230524
  Receipt Date: 20230524
  Transmission Date: 20230721
  Serious: No
  Sender: FDA-Public Use
  Company Number: US-TARO PHARMACEUTICALS USA INC.-2023TAR00254

PATIENT

DRUGS (2)
  1. CARBAMAZEPINE [Suspect]
     Active Substance: CARBAMAZEPINE
     Indication: Bipolar disorder
     Dosage: UNK, OD, ONCE A DAY IN EVENINGS
     Route: 048
     Dates: start: 202207, end: 202211
  2. Carbamazepine immediate release 200mg [Concomitant]
     Indication: Bipolar disorder
     Dosage: 200 MG
     Route: 065
     Dates: start: 20221111

REACTIONS (5)
  - Anxiety [Recovered/Resolved]
  - Agitation [Recovered/Resolved]
  - Depression [Recovered/Resolved]
  - Drug ineffective [Unknown]
  - Product substitution issue [Unknown]

NARRATIVE: CASE EVENT DATE: 20220101
